FAERS Safety Report 14852056 (Version 1)
Quarter: 2018Q2

REPORT INFORMATION
  Report Type: Spontaneous
  Country: US (occurrence: US)
  Receive Date: 20180507
  Receipt Date: 20180507
  Transmission Date: 20180711
  Serious: Yes (Hospitalization, Other)
  Sender: FDA-Public Use
  Company Number: US-AUROBINDO-AUR-APL-2018-023789

PATIENT
  Age: 19 Year
  Sex: Male

DRUGS (1)
  1. DEXAMETHASONE. [Suspect]
     Active Substance: DEXAMETHASONE
     Indication: HISTIOCYTOSIS HAEMATOPHAGIC
     Dosage: ()

REACTIONS (4)
  - Epstein-Barr viraemia [Unknown]
  - Gastrointestinal haemorrhage [Unknown]
  - Urinary tract infection [Unknown]
  - Escherichia infection [Unknown]
